FAERS Safety Report 5506988-X (Version None)
Quarter: 2007Q4

REPORT INFORMATION
  Report Type: 
  Country: None (occurrence: None)
  Receive Date: 20071105
  Receipt Date: 20071030
  Transmission Date: 20080405
  Serious: Yes (Other)
  Sender: FDA-Public Use
  Company Number: US-BOEHRINGER INGELHEIM PHARMACEUTICALS, INC.-2007-BP-23656BP

PATIENT

DRUGS (1)
  1. MICARDIS [Suspect]

REACTIONS (2)
  - MUSCLE ENZYME INCREASED [None]
  - MYOSITIS [None]
